FAERS Safety Report 4965022-0 (Version None)
Quarter: 2006Q1

REPORT INFORMATION
  Report Type: 
  Country: None (occurrence: None)
  Receive Date: 20060130
  Receipt Date: 20051003
  Transmission Date: 20060701
  Serious: No
  Sender: FDA-Public Use
  Company Number: COT_0231_2005

PATIENT
  Age: 42 Year
  Sex: Female
  Weight: 102.5129 kg

DRUGS (11)
  1. VENTAVIS [Suspect]
     Indication: PULMONARY HYPERTENSION
     Dosage: 5 MCG 6TO9X/DAY IH
     Dates: start: 20050929
  2. VENTAVIS [Suspect]
     Indication: PULMONARY HYPERTENSION
     Dosage: 5 MCG 6TO9X/DAY IH
     Dates: start: 20050929
  3. LASIX [Concomitant]
  4. ADVIL [Concomitant]
  5. SYNTHROID [Concomitant]
  6. ALDACTONE [Concomitant]
  7. TESSALON [Concomitant]
  8. NEXIUM [Concomitant]
  9. WARFARIN SODIUM [Concomitant]
  10. DIGITEK [Concomitant]
  11. TRACLEER [Concomitant]

REACTIONS (5)
  - DRY MOUTH [None]
  - INCREASED UPPER AIRWAY SECRETION [None]
  - NAUSEA [None]
  - PHARYNGOLARYNGEAL PAIN [None]
  - VOMITING [None]
